FAERS Safety Report 5276017-4 (Version None)
Quarter: 2007Q2

REPORT INFORMATION
  Report Type: 
  Country: None (occurrence: None)
  Receive Date: 20070326
  Receipt Date: 20070227
  Transmission Date: 20071010
  Serious: Yes (Hospitalization)
  Sender: FDA-Public Use
  Company Number: AU-JNJFOC-20070104558

PATIENT
  Sex: Male

DRUGS (13)
  1. TMC114 [Suspect]
     Route: 048
  2. TMC114 [Suspect]
     Indication: HIV INFECTION
     Route: 048
  3. RITONAVIR [Suspect]
     Indication: HIV INFECTION
     Route: 048
  4. MK0518 [Suspect]
     Indication: HIV INFECTION
     Route: 048
  5. DELAVIRDINE MESYLATE [Concomitant]
     Indication: HIV INFECTION
     Route: 048
  6. TRUVADA [Concomitant]
     Indication: HIV INFECTION
     Dosage: 200/300 MG DAILY
     Route: 048
  7. BACTRIM DS [Concomitant]
     Indication: ANTIFUNGAL PROPHYLAXIS
  8. ASCORBIC ACID [Concomitant]
     Indication: GENERAL PHYSICAL CONDITION
  9. AZITHROMYCIN [Concomitant]
     Indication: PROPHYLAXIS
  10. FLUCONAZOLE [Concomitant]
     Indication: ANTIFUNGAL PROPHYLAXIS
  11. OMEGA-3 MARINE TRIGLYCERIDES [Concomitant]
     Indication: GENERAL PHYSICAL CONDITION
  12. VALACYCLOVIR HYDROCHLORIDE [Concomitant]
     Indication: PROPHYLAXIS
  13. VITAMIN E [Concomitant]
     Indication: GENERAL PHYSICAL CONDITION

REACTIONS (1)
  - HERPES SIMPLEX [None]
